FAERS Safety Report 8999049 (Version 3)
Quarter: 2013Q2

REPORT INFORMATION
  Report Type: Spontaneous
  Country: US (occurrence: US)
  Receive Date: 20130103
  Receipt Date: 20130403
  Transmission Date: 20140414
  Serious: Yes (Hospitalization, Other)
  Sender: FDA-Public Use
  Company Number: US-009507513-1212USA003263

PATIENT
  Sex: Male

DRUGS (12)
  1. VICTRELIS [Suspect]
     Indication: HEPATITIS C
     Dosage: UNK
     Route: 048
     Dates: start: 20121227
  2. REBETOL [Suspect]
     Indication: HEPATITIS C
     Dosage: UNK
     Route: 048
     Dates: start: 20121129
  3. REBETOL [Suspect]
     Dosage: 200 MG, QD
     Route: 048
     Dates: start: 201301
  4. REBETOL [Suspect]
     Dosage: 6 DF, QD
  5. REBETOL [Suspect]
     Dosage: 5 DF, QD
     Dates: start: 201301
  6. REBETOL [Suspect]
     Dosage: 4 DF, QD
     Dates: start: 2013
  7. PEGASYS [Suspect]
     Indication: HEPATITIS C
     Dosage: UNK
     Dates: start: 20121129
  8. XIFAXAN [Concomitant]
  9. ALDACTONE TABLETS [Concomitant]
  10. KLONOPIN [Concomitant]
  11. PROTONIX [Concomitant]
  12. MORPHINE [Concomitant]

REACTIONS (30)
  - Upper respiratory tract infection [Unknown]
  - Transfusion [Unknown]
  - Transfusion [Unknown]
  - Bronchitis [Unknown]
  - Asthenia [Unknown]
  - Anaemia [Unknown]
  - Anaemia [Unknown]
  - Anaemia [Unknown]
  - Confusional state [Unknown]
  - Memory impairment [Unknown]
  - Blood iron increased [Unknown]
  - Gait disturbance [Unknown]
  - White blood cell count decreased [Unknown]
  - Leukopenia [Unknown]
  - Abdominal pain [Recovering/Resolving]
  - Headache [Recovering/Resolving]
  - Blood disorder [Unknown]
  - Dyspnoea [Unknown]
  - Nausea [Unknown]
  - Platelet count decreased [Unknown]
  - Thrombocytopenia [Unknown]
  - Nausea [Unknown]
  - Asthenia [Unknown]
  - Anaemia [Unknown]
  - Haemoglobin decreased [Unknown]
  - Thrombocytopenia [Unknown]
  - Platelet count decreased [Unknown]
  - Nausea [Recovering/Resolving]
  - Diarrhoea [Recovering/Resolving]
  - Dyspnoea [Unknown]
